FAERS Safety Report 26089648 (Version 1)
Quarter: 2025Q4

REPORT INFORMATION
  Report Type: Spontaneous
  Country: US (occurrence: US)
  Receive Date: 20251125
  Receipt Date: 20251125
  Transmission Date: 20260117
  Serious: Yes (Death, Hospitalization, Other)
  Sender: AMGEN
  Company Number: US-AMGEN-USASP2025228636

PATIENT

DRUGS (3)
  1. FILGRASTIM [Suspect]
     Active Substance: FILGRASTIM
     Indication: Autologous haematopoietic stem cell transplant
     Dosage: QD, DAY +5, WEIGHT {70KG: 300UG; WEIGHT 70-110KG: 480UG; WEIGHT }110KG: 600UG /ADMINISTERED DAILY UN
     Route: 058
  2. FILGRASTIM [Suspect]
     Active Substance: FILGRASTIM
     Dosage: QD, DAY +5, WEIGHT {70KG: 300UG; WEIGHT 70-110KG: 480UG; WEIGHT }110KG: 600UG /ADMINISTERED DAILY UN
     Route: 040
  3. MELPHALAN [Concomitant]
     Active Substance: MELPHALAN
     Indication: Plasma cell myeloma

REACTIONS (4)
  - Cardio-respiratory arrest [Fatal]
  - Unevaluable event [Unknown]
  - Thrombocytopenia [Unknown]
  - Injection site discomfort [Unknown]
